FAERS Safety Report 4696044-5 (Version None)
Quarter: 2005Q2

REPORT INFORMATION
  Report Type: 
  Country: None (occurrence: None)
  Receive Date: 20050621
  Receipt Date: 20050404
  Transmission Date: 20051028
  Serious: Yes (Life-Threatening, Hospitalization)
  Sender: FDA-Public Use
  Company Number: PHEH2005US03922

PATIENT
  Age: 7 Year
  Sex: Male
  Weight: 34 kg

DRUGS (2)
  1. RITALIN - SLOW RELEASE [Concomitant]
     Dosage: 30 MG, QD
  2. TRILEPTAL [Suspect]
     Indication: AFFECTIVE DISORDER
     Dosage: 300 MG, BID
     Route: 048
     Dates: start: 20050218, end: 20050318

REACTIONS (5)
  - HEPATIC FAILURE [None]
  - PYREXIA [None]
  - RASH MACULO-PAPULAR [None]
  - VIRAL INFECTION [None]
  - VOMITING [None]
